FAERS Safety Report 9692962 (Version 1)
Quarter: 2013Q4

REPORT INFORMATION
  Report Type: Spontaneous
  Country: BR (occurrence: BR)
  Receive Date: 20131118
  Receipt Date: 20131118
  Transmission Date: 20140711
  Serious: Yes (Other)
  Sender: FDA-Public Use
  Company Number: BR-SA-2013SA116075

PATIENT
  Sex: Female

DRUGS (7)
  1. LANTUS [Suspect]
     Indication: TYPE 2 DIABETES MELLITUS
     Route: 058
     Dates: start: 2008
  2. APIDRA [Suspect]
     Indication: TYPE 2 DIABETES MELLITUS
     Dosage: DOSE ACCORDING TO GLYCEMIC LEVELS
     Route: 058
     Dates: start: 2008
  3. CLIKSTAR [Concomitant]
     Indication: DEVICE THERAPY
  4. FUROSEMIDE [Concomitant]
     Indication: BLOOD PRESSURE
     Route: 048
  5. AMLODIPINE [Concomitant]
     Indication: BLOOD PRESSURE
     Route: 048
  6. LOSARTAN [Concomitant]
     Indication: BLOOD PRESSURE
     Dosage: START DATE: 3 YEARS AGO
     Route: 048
  7. DEVICE NOS [Concomitant]
     Indication: DEVICE THERAPY

REACTIONS (2)
  - Renal failure chronic [Not Recovered/Not Resolved]
  - Visual impairment [Not Recovered/Not Resolved]
